FAERS Safety Report 21524950 (Version 1)
Quarter: 2022Q4

REPORT INFORMATION
  Report Type: Spontaneous
  Country: US (occurrence: US)
  Receive Date: 20221030
  Receipt Date: 20221030
  Transmission Date: 20230112
  Serious: No
  Sender: FDA-Public Use
  Company Number: US-ELI_LILLY_AND_COMPANY-US202210014241

PATIENT
  Age: 75 Year
  Sex: Female

DRUGS (4)
  1. TRULICITY [Suspect]
     Active Substance: DULAGLUTIDE
     Indication: Blood glucose increased
     Dosage: 0.75 MG, UNKNOWN
     Route: 058
     Dates: start: 202209
  2. ONGLYZA [SAXAGLIPTIN] [Concomitant]
     Indication: Blood glucose increased
  3. METFORMIN [Concomitant]
     Active Substance: METFORMIN HYDROCHLORIDE
     Indication: Blood glucose increased
     Dosage: UNK UNK, UNKNOWN
     Dates: end: 202209
  4. MYCOPHENOLATE MOFETIL [Concomitant]
     Active Substance: MYCOPHENOLATE MOFETIL
     Indication: Liver disorder

REACTIONS (4)
  - Blood triglycerides increased [Unknown]
  - Blood cholesterol increased [Unknown]
  - Muscle spasms [Unknown]
  - Dehydration [Unknown]
